FAERS Safety Report 6981703-1 (Version None)
Quarter: 2010Q3

REPORT INFORMATION
  Report Type: 
  Country: None (occurrence: None)
  Receive Date: 20100914
  Receipt Date: 20091103
  Transmission Date: 20110219
  Serious: Yes (Other)
  Sender: FDA-Public Use
  Company Number: US-PFIZER INC-2009254521

PATIENT
  Sex: Female

DRUGS (2)
  1. LYRICA [Suspect]
  2. LAMICTAL [Suspect]

REACTIONS (3)
  - HEPATOMEGALY [None]
  - LIVER FUNCTION TEST ABNORMAL [None]
  - SUICIDAL IDEATION [None]
